FAERS Safety Report 7579796-6 (Version None)
Quarter: 2011Q2

REPORT INFORMATION
  Report Type: 
  Country: None (occurrence: None)
  Receive Date: 20110525
  Receipt Date: 20110224
  Transmission Date: 20111010
  Serious: Yes (Hospitalization)
  Sender: FDA-Public Use
  Company Number: 320110

PATIENT
  Age: 55 Year
  Sex: Male
  Weight: 110.2 kg

DRUGS (8)
  1. METFORMIN HCL [Concomitant]
  2. SIMVASTATIN [Concomitant]
  3. VICTOZA [Suspect]
     Indication: TYPE 2 DIABETES MELLITUS
     Dosage: 1.8 MG, QD, SUBCUTANEOUS, SUBCUTANEOUS
     Route: 058
     Dates: start: 20100910, end: 20100101
  4. VICTOZA [Suspect]
     Indication: TYPE 2 DIABETES MELLITUS
     Dosage: 1.8 MG, QD, SUBCUTANEOUS, SUBCUTANEOUS
     Route: 058
     Dates: start: 20101213, end: 20101214
  5. HYDROCHLOROTHIAZIDE [Suspect]
     Indication: HYPERTENSION
  6. LOSARTAN POTASSIUM [Concomitant]
  7. AMLODIPINE [Concomitant]
  8. NIASPAN [Concomitant]

REACTIONS (1)
  - PANCREATITIS ACUTE [None]
